FAERS Safety Report 10270367 (Version 2)
Quarter: 2014Q3

REPORT INFORMATION
  Report Type: Report from Study
  Country: CA (occurrence: CA)
  Receive Date: 20140701
  Receipt Date: 20140701
  Transmission Date: 20150326
  Serious: Yes (Hospitalization, Other)
  Sender: FDA-Public Use
  Company Number: CA-ABBVIE-14P-028-1245628-00

PATIENT
  Age: 18 Year
  Sex: Male

DRUGS (2)
  1. HUMIRA [Suspect]
     Active Substance: ADALIMUMAB
     Indication: CROHN^S DISEASE
     Route: 058
     Dates: start: 20100625, end: 20140528
  2. HUMIRA [Suspect]
     Active Substance: ADALIMUMAB
     Dosage: LATEST DOSE: 18-JUN-2014
     Dates: start: 20140618

REACTIONS (4)
  - Anorectal disorder [Unknown]
  - Crohn^s disease [Not Recovered/Not Resolved]
  - Hospitalisation [Unknown]
  - Blood pressure increased [Unknown]

NARRATIVE: CASE EVENT DATE: 20140527
